FAERS Safety Report 4938602-6 (Version None)
Quarter: 2006Q1

REPORT INFORMATION
  Report Type: 
  Country: None (occurrence: None)
  Receive Date: 20060306
  Receipt Date: 20060217
  Transmission Date: 20060701
  Serious: Yes (Other)
  Sender: FDA-Public Use
  Company Number: US200602001291

PATIENT
  Age: 70 Year
  Sex: Female

DRUGS (6)
  1. FORTEO [Suspect]
     Indication: OSTEOPOROSIS
     Dosage: 20 UG, DAILY (1/D)
     Dates: start: 20041001
  2. FORTEO PEN (FORTEO PEN) PEN, DISPOSABLE [Concomitant]
  3. SYNTHROID [Concomitant]
  4. ACIPHEX [Concomitant]
  5. BIAXIN [Concomitant]
  6. TEMAZEPAM [Concomitant]

REACTIONS (9)
  - BALANCE DISORDER [None]
  - COMPRESSION FRACTURE [None]
  - FALL [None]
  - FEMUR FRACTURE [None]
  - JOINT EFFUSION [None]
  - NIGHT SWEATS [None]
  - ROTATOR CUFF SYNDROME [None]
  - SHOULDER PAIN [None]
  - TINNITUS [None]
